FAERS Safety Report 9956530 (Version 1)
Quarter: 2014Q1

REPORT INFORMATION
  Report Type: Report from Study
  Country: US (occurrence: US)
  Receive Date: 20140304
  Receipt Date: 20140304
  Transmission Date: 20141002
  Serious: No
  Sender: FDA-Public Use
  Company Number: US-ABBVIE-13P-163-1100679-00

PATIENT
  Age: 57 Year
  Sex: Female
  Weight: 67.19 kg

DRUGS (2)
  1. HUMIRA [Suspect]
     Indication: RHEUMATOID ARTHRITIS
     Route: 058
     Dates: start: 201301
  2. PREDNISONE [Suspect]
     Indication: RHEUMATOID ARTHRITIS
     Route: 048
     Dates: end: 20130517

REACTIONS (4)
  - Joint swelling [Recovering/Resolving]
  - Increased tendency to bruise [Not Recovered/Not Resolved]
  - Rash [Recovered/Resolved]
  - Arthralgia [Recovering/Resolving]
